FAERS Safety Report 6610615-8 (Version None)
Quarter: 2010Q1

REPORT INFORMATION
  Report Type: 
  Country: None (occurrence: None)
  Receive Date: 20100302
  Receipt Date: 20100222
  Transmission Date: 20100710
  Serious: Yes (Hospitalization)
  Sender: FDA-Public Use
  Company Number: JP-ABBOTT-09P-087-0613261-00

PATIENT
  Age: 46 Year
  Sex: Male
  Weight: 45 kg

DRUGS (10)
  1. KALETRA [Suspect]
     Indication: HIV INFECTION
     Route: 048
     Dates: start: 20081201
  2. TRUVADA [Concomitant]
     Indication: HIV INFECTION
     Route: 048
     Dates: start: 20081201
  3. VALGANCICLOVIR HCL [Concomitant]
     Indication: CYTOMEGALOVIRUS TEST POSITIVE
     Dates: start: 20081106, end: 20081116
  4. VALGANCICLOVIR HCL [Concomitant]
     Dates: start: 20081220, end: 20090101
  5. AZITHROMYC [Concomitant]
     Indication: OPPORTUNISTIC INFECTION PROPHYLAXIS
     Dates: start: 20081018
  6. BAKTAR [Concomitant]
     Indication: PNEUMOCYSTIS JIROVECI PNEUMONIA
     Dates: start: 20081018, end: 20081130
  7. BAKTAR [Concomitant]
     Dates: start: 20081201
  8. FLUCONAZOLE [Concomitant]
     Indication: FUNGAL INFECTION
     Dates: start: 20081018, end: 20090122
  9. FAMOTIDINE [Concomitant]
     Indication: PROPHYLAXIS AGAINST GASTROINTESTINAL ULCER
     Dates: start: 20081030, end: 20090122
  10. URSODEOXYCHOLIC ACID [Concomitant]
     Indication: LIVER DISORDER
     Dates: start: 20081030, end: 20081117

REACTIONS (5)
  - ADRENAL INSUFFICIENCY [None]
  - DECREASED APPETITE [None]
  - EOSINOPHILIA [None]
  - HYPONATRAEMIA [None]
  - IMMUNE RECONSTITUTION SYNDROME [None]
